FAERS Safety Report 23850951 (Version 3)
Quarter: 2024Q2

REPORT INFORMATION
  Report Type: Spontaneous
  Country: US (occurrence: US)
  Receive Date: 20240514
  Receipt Date: 20240527
  Transmission Date: 20240717
  Serious: No
  Sender: FDA-Public Use
  Company Number: US-OPELLA-2024OHG016193

PATIENT
  Age: 32 Year
  Sex: Male

DRUGS (2)
  1. SELSUN BLUE 2-IN-1 [Suspect]
     Active Substance: SELENIUM SULFIDE
     Indication: Dandruff
     Dosage: THERAPY START DATE: END OF AUGUST BEGINNING OF SEPTEMBER 2023 AS HE USED THE PRODUCT ONLY 4 TIMES
     Route: 065
  2. SELSUN BLUE 2-IN-1 [Suspect]
     Active Substance: SELENIUM SULFIDE
     Indication: Dry skin

REACTIONS (3)
  - Alopecia [Unknown]
  - Hair growth abnormal [Unknown]
  - Therapeutic product effect incomplete [Unknown]
